FAERS Safety Report 8345438-5 (Version None)
Quarter: 2012Q2

REPORT INFORMATION
  Report Type: 
  Country: None (occurrence: None)
  Receive Date: 20120508
  Receipt Date: 20120423
  Transmission Date: 20120825
  Serious: Yes (Hospitalization)
  Sender: FDA-Public Use
  Company Number: JP-UCBSA-056521

PATIENT
  Age: 50 Year
  Sex: Female

DRUGS (2)
  1. LOXOPROFEN [Concomitant]
     Route: 048
     Dates: end: 20120423
  2. XYZAL [Suspect]
     Indication: RHINITIS ALLERGIC
     Route: 048
     Dates: end: 20120423

REACTIONS (1)
  - ANAPHYLACTIC SHOCK [None]
